FAERS Safety Report 15261379 (Version 1)
Quarter: 2018Q3

REPORT INFORMATION
  Report Type: Spontaneous
  Country: US (occurrence: US)
  Receive Date: 20180719
  Receipt Date: 20180719
  Transmission Date: 20181010
  Serious: No
  Sender: FDA-Public Use
  Company Number: None

PATIENT
  Age: 58 Year
  Sex: Female

DRUGS (1)
  1. HUMIRA [Suspect]
     Active Substance: ADALIMUMAB
     Indication: RHEUMATOID ARTHRITIS
     Route: 058
     Dates: start: 20180626

REACTIONS (5)
  - Psoriatic arthropathy [None]
  - Joint swelling [None]
  - Arthralgia [None]
  - Rheumatoid arthritis [None]
  - Immobile [None]

NARRATIVE: CASE EVENT DATE: 20130701
